FAERS Safety Report 8268770-2 (Version None)
Quarter: 2012Q2

REPORT INFORMATION
  Report Type: 
  Country: None (occurrence: None)
  Receive Date: 20120409
  Receipt Date: 20120409
  Transmission Date: 20120825
  Serious: Yes (Life-Threatening, Hospitalization)
  Sender: FDA-Public Use
  Company Number: None

PATIENT
  Age: 68 Year
  Sex: Male
  Weight: 101 kg

DRUGS (9)
  1. LISINOPRIL [Concomitant]
     Route: 048
  2. DILAUDID [Concomitant]
     Route: 048
  3. OXYCODONE 10-15     MG [Concomitant]
     Route: 048
  4. CRESTOR [Concomitant]
     Route: 048
  5. ASPIRIN [Concomitant]
     Route: 048
  6. MULTI-VITAMIN [Concomitant]
     Route: 048
  7. XARELTO [Suspect]
     Indication: THROMBOSIS PROPHYLAXIS
     Dosage: 10 MG
     Route: 048
     Dates: start: 20120330, end: 20120403
  8. XARELTO [Suspect]
     Indication: KNEE ARTHROPLASTY
     Dosage: 10 MG
     Route: 048
     Dates: start: 20120330, end: 20120403
  9. CELEXA [Concomitant]
     Route: 048

REACTIONS (4)
  - OEDEMA PERIPHERAL [None]
  - BLISTER [None]
  - POST PROCEDURAL PULMONARY EMBOLISM [None]
  - IMMOBILE [None]
